FAERS Safety Report 18497552 (Version 1)
Quarter: 2020Q4

REPORT INFORMATION
  Report Type: Other
  Country: GB (occurrence: GB)
  Receive Date: 20201112
  Receipt Date: 20201112
  Transmission Date: 20210114
  Serious: No
  Sender: FDA-Public Use
  Company Number: GB-LUPIN PHARMACEUTICALS INC.-2020-06758

PATIENT
  Age: 90 Year
  Sex: Female
  Weight: 53 kg

DRUGS (25)
  1. BUTRANS [Concomitant]
     Active Substance: BUPRENORPHINE
     Indication: ILL-DEFINED DISORDER
     Dosage: APPLY ONE PATCH ONCE A WEEK ON A WEDNESDAY
     Route: 065
     Dates: start: 20200428, end: 20200618
  2. LACTULOSE. [Concomitant]
     Active Substance: LACTULOSE
     Indication: ILL-DEFINED DISORDER
     Dosage: 15 MILLILITER, BID, AS REQUIRED
     Route: 065
     Dates: start: 20200310
  3. BUMETANIDE. [Concomitant]
     Active Substance: BUMETANIDE
     Indication: ILL-DEFINED DISORDER
     Dosage: 1 DOSAGE FORM, QD
     Route: 065
     Dates: start: 20200605, end: 20200612
  4. BETNOVATE [Concomitant]
     Active Substance: BETAMETHASONE
     Indication: ILL-DEFINED DISORDER
     Dosage: UNK UNK, BID, TWO WEEKS
     Route: 065
     Dates: start: 20200904, end: 20200905
  5. DERMOL [BENZALKONIUM CHLORIDE;CHLORHEXIDINE HYDROCHLORIDE;ISOPROPYL MY [Concomitant]
     Indication: ILL-DEFINED DISORDER
     Dosage: USE ONCE A DAY AS DIRECTED
     Route: 065
     Dates: start: 20200311
  6. SOLIFENACIN [Concomitant]
     Active Substance: SOLIFENACIN
     Indication: ILL-DEFINED DISORDER
     Dosage: TAKE ONE DAILY FOR BLADDER SYMPTOMS
     Route: 065
     Dates: start: 20191112
  7. CETIRIZINE [Concomitant]
     Active Substance: CETIRIZINE HYDROCHLORIDE
     Indication: ILL-DEFINED DISORDER
     Dosage: 1 DOSAGE FORM, QD
     Route: 065
     Dates: start: 20200909
  8. PREDNISOLONE. [Concomitant]
     Active Substance: PREDNISOLONE
     Indication: ILL-DEFINED DISORDER
     Dosage: 9MG A DAY, AIMING TO REDUCE BY 1MG EVERY 2 WEEKS
     Route: 065
     Dates: start: 20200310
  9. CLOBETASOL PROPIONATE. [Concomitant]
     Active Substance: CLOBETASOL PROPIONATE
     Indication: ILL-DEFINED DISORDER
     Dosage: APPLY TO AFFECTED AREAS ONCE DAILY
     Route: 065
     Dates: start: 20200313
  10. MOVICOL [Concomitant]
     Active Substance: POLYETHYLENE GLYCOL 3350\POTASSIUM CHLORIDE\SODIUM BICARBONATE\SODIUM CHLORIDE
     Indication: CONSTIPATION
  11. IODOSORB [Concomitant]
     Active Substance: CADEXOMER IODINE
     Indication: ILL-DEFINED DISORDER
     Dosage: UNK, AS DIRECTED
     Route: 065
     Dates: start: 20200703, end: 20200704
  12. SALIVIX [Concomitant]
     Indication: ILL-DEFINED DISORDER
     Dosage: UNK, AS DIRECTED
     Route: 065
     Dates: start: 20200803
  13. CASSIA SENNA [Concomitant]
     Active Substance: HERBALS\SENNOSIDES
     Indication: ILL-DEFINED DISORDER
     Dosage: TAKE TWO 5ML SPOONFULS EACH NIGHT WHEN REQUIRED
     Route: 065
     Dates: start: 20200310
  14. PARACETAMOL [Concomitant]
     Active Substance: ACETAMINOPHEN
     Indication: ILL-DEFINED DISORDER
     Dosage: TAKE FOUR 5ML SPOONFULS 4 TIMES/DAY AS REQUIRED
     Route: 065
     Dates: start: 20191017
  15. CARBOMER [Concomitant]
     Active Substance: CARBOMER
     Indication: ILL-DEFINED DISORDER
     Dosage: ONE DROP 3-4 TIMES/DAY TO BOTH EYES FOR DRY EYES
     Route: 065
     Dates: start: 20200803
  16. MOVICOL [Concomitant]
     Active Substance: POLYETHYLENE GLYCOL 3350\POTASSIUM CHLORIDE\SODIUM BICARBONATE\SODIUM CHLORIDE
     Indication: ILL-DEFINED DISORDER
     Dosage: ONE TO TWO A DAY AS REQUIRED FOR CONSTIPATION
     Route: 065
     Dates: start: 20200616, end: 20200714
  17. LEVOTHYROXINE. [Concomitant]
     Active Substance: LEVOTHYROXINE
     Indication: ILL-DEFINED DISORDER
     Dosage: 1 DOSAGE FORM, QD, BEFORE BREAKFAST
     Route: 065
     Dates: start: 20190912
  18. CLOPIDOGREL [Concomitant]
     Active Substance: CLOPIDOGREL BISULFATE
     Indication: ILL-DEFINED DISORDER
     Dosage: 1 DOSAGE FORM, QD
     Route: 065
     Dates: start: 20190912
  19. SPIRONOLACTONE. [Concomitant]
     Active Substance: SPIRONOLACTONE
     Indication: ILL-DEFINED DISORDER
     Dosage: 1 DOSAGE FORM, QD
     Route: 065
     Dates: start: 20200731
  20. NITROFURANTOIN. [Concomitant]
     Active Substance: NITROFURANTOIN
     Indication: ILL-DEFINED DISORDER
     Dosage: 1 DOSAGE FORM, BID
     Route: 065
     Dates: start: 20200821, end: 20200828
  21. BISOPROLOL [Concomitant]
     Active Substance: BISOPROLOL
     Indication: ILL-DEFINED DISORDER
     Dosage: 1 DOSAGE FORM, QD, IN THE MORNING
     Route: 065
     Dates: start: 20200310
  22. CETRABEN [LIGHT LIQUID PARAFFIN;WHITE SOFT PARAFFIN] [Concomitant]
     Indication: ILL-DEFINED DISORDER
     Dosage: UNK UNK, BID
     Route: 065
     Dates: start: 20200716, end: 20200813
  23. SERTRALINE HYDROCHLORIDE TABLETS [Suspect]
     Active Substance: SERTRALINE HYDROCHLORIDE
     Indication: PRODUCT USED FOR UNKNOWN INDICATION
     Dosage: 1 DOSAGE FORM, QD
     Route: 065
     Dates: start: 20200827
  24. OMEPRAZOLE. [Concomitant]
     Active Substance: OMEPRAZOLE
     Indication: ILL-DEFINED DISORDER
     Dosage: TAKE ONE IN THE MORNING 2 HOURS APART
     Route: 065
     Dates: start: 20190912
  25. EMULSIFYING WAX [Concomitant]
     Indication: ILL-DEFINED DISORDER
     Dosage: UNK, BID
     Route: 065
     Dates: start: 20200311

REACTIONS (2)
  - Dizziness [Recovered/Resolved]
  - Rash [Unknown]

NARRATIVE: CASE EVENT DATE: 2020
